FAERS Safety Report 17626613 (Version 1)
Quarter: 2020Q2

REPORT INFORMATION
  Report Type: Spontaneous
  Country: FR (occurrence: FR)
  Receive Date: 20200405
  Receipt Date: 20200405
  Transmission Date: 20200713
  Serious: Yes (Hospitalization)
  Sender: FDA-Public Use
  Company Number: FR-ACCORD-178171

PATIENT
  Age: 67 Year
  Sex: Female
  Weight: 63 kg

DRUGS (3)
  1. TRUXIMA [Suspect]
     Active Substance: RITUXIMAB-ABBS
     Indication: LYMPHOMA
     Route: 041
     Dates: start: 20200222, end: 20200224
  2. CYTARABINE ACCORD [Suspect]
     Active Substance: CYTARABINE
     Indication: LYMPHOMA
     Dosage: STRENGTH:100 MG/ML,SOLUTION FOR INJECTION OR INFUSION
     Route: 041
     Dates: start: 20200222, end: 20200224
  3. CARBOPLATINE ACCORD [Suspect]
     Active Substance: CARBOPLATIN
     Indication: LYMPHOMA
     Dosage: STRENGTH: 10 MG/ML SOLUTION FOR INFUSION
     Route: 041
     Dates: start: 20200222, end: 20200224

REACTIONS (3)
  - Off label use [Unknown]
  - Vertigo [Recovered/Resolved]
  - Cerebellar ataxia [Recovered/Resolved]

NARRATIVE: CASE EVENT DATE: 20200226
